FAERS Safety Report 8552695-9 (Version None)
Quarter: 2012Q3

REPORT INFORMATION
  Report Type: 
  Country: None (occurrence: None)
  Receive Date: 20120731
  Receipt Date: 20120724
  Transmission Date: 20120928
  Serious: No
  Sender: FDA-Public Use
  Company Number: US-PFIZER INC-2012179869

PATIENT
  Sex: Male
  Weight: 81.633 kg

DRUGS (35)
  1. ASPIRIN [Concomitant]
     Indication: CARDIAC DISORDER
  2. OMEPRAZOLE [Concomitant]
     Indication: HYPERTENSION
     Dosage: 20 MG AN HOUR BEFORE EATING, UNK
  3. OMEPRAZOLE [Concomitant]
     Indication: DIABETES MELLITUS
  4. VIAGRA [Suspect]
     Dosage: 50 MG, AS NEEDED
     Route: 048
  5. ATENOLOL [Concomitant]
     Indication: HYPERTENSION
     Dosage: 25 MG, 2X/DAY
  6. ATENOLOL [Concomitant]
     Indication: DIABETES MELLITUS
  7. AMLODIPINE [Concomitant]
     Indication: BLOOD CHOLESTEROL ABNORMAL
  8. METFORMIN HCL [Concomitant]
     Indication: HYPERTENSION
     Dosage: 1000 MG, 2X/DAY
  9. LIPITOR [Concomitant]
     Indication: BLOOD CHOLESTEROL ABNORMAL
  10. LISINOPRIL [Concomitant]
     Indication: HYPERTENSION
     Dosage: 40 MG, 2X/DAY
  11. ZETIA [Concomitant]
     Indication: HYPERTENSION
     Dosage: 10 MG, DAILY
  12. METFORMIN HCL [Concomitant]
     Indication: CARDIAC DISORDER
  13. ASPIRIN [Concomitant]
     Indication: HYPERTENSION
     Dosage: 81 MG, DAILY
  14. LISINOPRIL [Concomitant]
     Indication: CARDIAC DISORDER
  15. METFORMIN HCL [Concomitant]
     Indication: BLOOD CHOLESTEROL ABNORMAL
  16. LIPITOR [Concomitant]
     Indication: CARDIAC DISORDER
  17. ASPIRIN [Concomitant]
     Indication: DIABETES MELLITUS
  18. ASPIRIN [Concomitant]
     Indication: BLOOD CHOLESTEROL ABNORMAL
  19. ATENOLOL [Concomitant]
     Indication: CARDIAC DISORDER
  20. METFORMIN HCL [Concomitant]
     Indication: DIABETES MELLITUS
  21. LIPITOR [Concomitant]
     Indication: HYPERTENSION
     Dosage: 10 MG, DAILY
  22. OMEPRAZOLE [Concomitant]
     Indication: BLOOD CHOLESTEROL ABNORMAL
  23. VIAGRA [Suspect]
     Indication: ERECTILE DYSFUNCTION
     Dosage: 25 MG, AS NEEDED
     Route: 048
  24. VIAGRA [Suspect]
     Dosage: SPLITTING 100MG TABLET IN TO HALF, UNK
     Route: 048
     Dates: start: 20120701
  25. ATENOLOL [Concomitant]
     Indication: BLOOD CHOLESTEROL ABNORMAL
  26. LISINOPRIL [Concomitant]
     Indication: BLOOD CHOLESTEROL ABNORMAL
  27. LISINOPRIL [Concomitant]
     Indication: DIABETES MELLITUS
  28. AMLODIPINE [Concomitant]
     Indication: DIABETES MELLITUS
  29. AMLODIPINE [Concomitant]
     Indication: CARDIAC DISORDER
  30. LIPITOR [Concomitant]
     Indication: DIABETES MELLITUS
  31. OMEPRAZOLE [Concomitant]
     Indication: CARDIAC DISORDER
  32. AMLODIPINE [Concomitant]
     Indication: HYPERTENSION
     Dosage: 5 MG, 2X/DAY
  33. ZETIA [Concomitant]
     Indication: DIABETES MELLITUS
  34. ZETIA [Concomitant]
     Indication: CARDIAC DISORDER
  35. ZETIA [Concomitant]
     Indication: BLOOD CHOLESTEROL ABNORMAL

REACTIONS (2)
  - PRODUCT COUNTERFEIT [None]
  - DRUG EFFECT DECREASED [None]
